FAERS Safety Report 19364182 (Version 2)
Quarter: 2021Q3

REPORT INFORMATION
  Report Type: Spontaneous
  Country: JP (occurrence: JP)
  Receive Date: 20210602
  Receipt Date: 20210712
  Transmission Date: 20211014
  Serious: Yes (Life-Threatening)
  Sender: FDA-Public Use
  Company Number: JP-DSJP-DSJ-2021-116566

PATIENT
  Age: 65 Year
  Sex: Male

DRUGS (3)
  1. PITAVASTATIN CA [Concomitant]
     Active Substance: PITAVASTATIN CALCIUM
     Dosage: UNK
     Route: 065
  2. OLMESARTAN OD TABLETS ?DSEP? [Suspect]
     Active Substance: OLMESARTAN MEDOXOMIL
     Indication: PRODUCT USED FOR UNKNOWN INDICATION
     Dosage: UNK
     Route: 065
  3. NAFTOPIDIL OD [Suspect]
     Active Substance: NAFTOPIDIL
     Indication: DYSURIA
     Dosage: 25 MG, QD
     Route: 048
     Dates: start: 20210329, end: 20210526

REACTIONS (1)
  - Loss of consciousness [Recovered/Resolved with Sequelae]

NARRATIVE: CASE EVENT DATE: 20210329
